FAERS Safety Report 4559131-8 (Version None)
Quarter: 2005Q1

REPORT INFORMATION
  Report Type: 
  Country: None (occurrence: None)
  Receive Date: 20050124
  Receipt Date: 20050112
  Transmission Date: 20050727
  Serious: Yes (Other)
  Sender: FDA-Public Use
  Company Number: PHBS2005US01066

PATIENT
  Age: 46 Year
  Sex: Female

DRUGS (3)
  1. OCTREOTIDE ACETATE [Suspect]
     Indication: PARATHYROID TUMOUR
     Dosage: 50 UG, Q8H
     Route: 058
  2. OCTREOTIDE ACETATE [Suspect]
     Dosage: 500 UG, Q12H
     Route: 058
  3. OCTREOTIDE ACETATE [Suspect]
     Dosage: 25 UG, Q8H
     Route: 058

REACTIONS (4)
  - ACCIDENTAL OVERDOSE [None]
  - BLOOD CALCIUM INCREASED [None]
  - NAUSEA [None]
  - VOMITING [None]
